FAERS Safety Report 8329831-2 (Version None)
Quarter: 2012Q2

REPORT INFORMATION
  Report Type: 
  Country: None (occurrence: None)
  Receive Date: 20120502
  Receipt Date: 20091109
  Transmission Date: 20120825
  Serious: No
  Sender: FDA-Public Use
  Company Number: US-TEVA-2009014880

PATIENT
  Sex: Male
  Weight: 83.99 kg

DRUGS (3)
  1. NUVIGIL [Suspect]
     Indication: NARCOLEPSY
     Dosage: 150 MILLIGRAM;
     Route: 048
     Dates: start: 20091106
  2. AVAPRO [Concomitant]
     Indication: HYPERTENSION
     Dates: start: 20020101
  3. SIMCOR [Concomitant]
     Indication: BLOOD CHOLESTEROL INCREASED
     Dates: start: 20020101

REACTIONS (3)
  - DRUG EFFECT INCREASED [None]
  - EUPHORIC MOOD [None]
  - INTENTIONAL DRUG MISUSE [None]
